FAERS Safety Report 7119292-3 (Version None)
Quarter: 2010Q4

REPORT INFORMATION
  Report Type: 
  Country: None (occurrence: None)
  Receive Date: 20101123
  Receipt Date: 20101119
  Transmission Date: 20110411
  Serious: No
  Sender: FDA-Public Use
  Company Number: US-PFIZER INC-2010153660

PATIENT
  Sex: Male

DRUGS (8)
  1. CAMPTOSAR [Suspect]
     Indication: ACUTE LYMPHOCYTIC LEUKAEMIA
     Dosage: UNK
  2. CAMPTOSAR [Suspect]
     Indication: NEOPLASM MALIGNANT
  3. CEFEPIME [Concomitant]
     Dosage: UNK
  4. FILGRASTIM [Concomitant]
     Dosage: UNK
  5. VANCOMYCIN [Concomitant]
     Dosage: UNK
  6. TRIMETHOPRIM [Concomitant]
     Dosage: UNK
  7. MEROPENEM [Concomitant]
     Dosage: UNK
  8. BACTRIM [Concomitant]
     Dosage: UNK

REACTIONS (1)
  - EOSINOPHILIA [None]
